FAERS Safety Report 23273266 (Version 2)
Quarter: 2023Q4

REPORT INFORMATION
  Report Type: Spontaneous
  Country: US (occurrence: US)
  Receive Date: 20231207
  Receipt Date: 20231214
  Transmission Date: 20240109
  Serious: Yes (Other)
  Sender: FDA-Public Use
  Company Number: US-MLMSERVICE-20231129-4688056-1

PATIENT
  Age: 11 Year
  Sex: Female

DRUGS (8)
  1. METHOTREXATE SODIUM [Suspect]
     Active Substance: METHOTREXATE SODIUM
     Indication: B-cell type acute leukaemia
     Dosage: ON DAYS 8 AND 29 OF EACH CYCLE, CYCLIC
     Route: 037
  2. BLINATUMOMAB [Concomitant]
     Active Substance: BLINATUMOMAB
     Indication: B-cell type acute leukaemia
     Dosage: FOR TWO CYCLES (28 DAYS OF CONTINUOUS INFUSION FOLLOWED BY A 1-WEEK BREAK), INFUSION
     Dates: start: 201812
  3. BLINATUMOMAB [Concomitant]
     Active Substance: BLINATUMOMAB
     Dosage: 15 UG/M2, 1X/DAY, EACH CYCLE OF 35 DAYS WITH 28 DAYS
  4. BLINATUMOMAB [Concomitant]
     Active Substance: BLINATUMOMAB
     Dosage: CYCLE 2, CYCLIC
     Dates: start: 201901
  5. BLINATUMOMAB [Concomitant]
     Active Substance: BLINATUMOMAB
     Dosage: CYCLE 2-10, CYCLIC
     Dates: start: 201906, end: 202003
  6. BLINATUMOMAB [Concomitant]
     Active Substance: BLINATUMOMAB
     Dosage: CYCLE 11, CYCLIC
     Dates: start: 202004
  7. DEXAMETHASONE [Concomitant]
     Active Substance: DEXAMETHASONE
     Indication: Pyrexia
     Dosage: FOR 2 DAYS, CYCLIC
  8. DEXAMETHASONE [Concomitant]
     Active Substance: DEXAMETHASONE
     Indication: B-cell type acute leukaemia

REACTIONS (4)
  - Dysarthria [Recovered/Resolved]
  - Syncope [Recovered/Resolved]
  - Neurotoxicity [Recovered/Resolved]
  - Partial seizures [Recovered/Resolved]

NARRATIVE: CASE EVENT DATE: 20200401
